FAERS Safety Report 20724856 (Version 2)
Quarter: 2022Q2

REPORT INFORMATION
  Report Type: Report from Study
  Country: GB (occurrence: GB)
  Receive Date: 20220419
  Receipt Date: 20220510
  Transmission Date: 20220720
  Serious: Yes (Other)
  Sender: FDA-Public Use
  Company Number: GB-ROCHE-1732161

PATIENT
  Age: 52 Year
  Sex: Female

DRUGS (55)
  1. DOCETAXEL [Suspect]
     Active Substance: DOCETAXEL
     Dosage: 180 MG, EVERY 3 WEEKS
     Route: 042
     Dates: start: 20151231
  2. LETROZOLE [Suspect]
     Active Substance: LETROZOLE
     Dosage: 2.5 MG, 1X/DAY
     Route: 048
     Dates: start: 20160407, end: 20181129
  3. PACLITAXEL [Suspect]
     Active Substance: PACLITAXEL
     Dosage: 111 MG, EVERY 3 WEEKS
     Route: 042
     Dates: start: 20160311, end: 20160324
  4. TRASTUZUMAB [Suspect]
     Active Substance: TRASTUZUMAB
     Indication: Breast cancer metastatic
     Dosage: 600 MG, EVERY 3 WEEKS
     Route: 058
     Dates: start: 20151231
  5. TRASTUZUMAB [Suspect]
     Active Substance: TRASTUZUMAB
     Dosage: 600 MG, EVERY 3 WEEKS
     Route: 058
     Dates: start: 20200619
  6. ACYCLOVIR [Concomitant]
     Active Substance: ACYCLOVIR
     Dosage: UNK
     Route: 048
     Dates: start: 20190606, end: 20190627
  7. ALMOND OIL [Concomitant]
     Active Substance: ALMOND OIL
     Dosage: UNK, 1X/DAY
     Route: 061
     Dates: start: 20191219
  8. ALMOND OIL [Concomitant]
     Active Substance: ALMOND OIL
     Dosage: UNK, 1X/DAY
     Route: 061
     Dates: start: 20200117, end: 20200117
  9. CARBOMER [Concomitant]
     Active Substance: CARBOMER
     Dosage: 1 DROP, AS NEEDED
     Route: 047
     Dates: start: 20160706
  10. CETIRIZINE [Concomitant]
     Active Substance: CETIRIZINE HYDROCHLORIDE
     Dosage: 10 MG, DAILY AS NEEDED
     Route: 048
     Dates: start: 20170911
  11. CLOBETASONE [Concomitant]
     Active Substance: CLOBETASONE
     Route: 061
  12. CHLORHEXIDINE [Concomitant]
     Active Substance: CHLORHEXIDINE
     Dosage: 10 MG
     Dates: start: 20200710
  13. COCODAMOL [Concomitant]
     Active Substance: ACETAMINOPHEN\CODEINE PHOSPHATE
     Dosage: UNK, AS NEEDED
     Route: 048
     Dates: start: 20190719
  14. DEXAMETHASONE SODIUM PHOSPHATE [Concomitant]
     Active Substance: DEXAMETHASONE SODIUM PHOSPHATE
     Dosage: 1 DROP, 2X/DAY
     Route: 047
     Dates: start: 20191119, end: 20191126
  15. DEXAMETHASONE SODIUM PHOSPHATE [Concomitant]
     Active Substance: DEXAMETHASONE SODIUM PHOSPHATE
     Dosage: 1 DROP, 1X/DAY
     Route: 047
     Dates: start: 20191127
  16. ESTRIOL [Concomitant]
     Active Substance: ESTRIOL
     Dosage: 0.1% CREAM AS NEEDED, 2-3 WEEKS
     Route: 067
     Dates: start: 20150415
  17. EUCALYPTUS OIL [Concomitant]
     Active Substance: EUCALYPTUS OIL
     Dosage: UNK, 1X/DAY
     Route: 061
     Dates: start: 20191219, end: 20191219
  18. EUMOVATE [Concomitant]
     Active Substance: CLOBETASONE BUTYRATE
     Dosage: UNK, AS NEEDED
     Route: 061
     Dates: start: 201904, end: 20190502
  19. EURAX [Concomitant]
     Active Substance: CROTAMITON
     Dosage: UNK, AS NEEDED
     Dates: start: 20190516, end: 201906
  20. EVENING PRIMROSE OIL\HERBALS [Concomitant]
     Active Substance: EVENING PRIMROSE OIL\HERBALS
     Dosage: UNK UNK, 1X/DAY
     Route: 048
     Dates: start: 2017
  21. FEXOFENADINE [Concomitant]
     Active Substance: FEXOFENADINE HYDROCHLORIDE
     Dosage: 180 MG, 1X/DAY
     Route: 048
     Dates: start: 20170504, end: 20170519
  22. FEXOFENADINE [Concomitant]
     Active Substance: FEXOFENADINE HYDROCHLORIDE
     Dosage: 180 MG, AS NEEDED
     Route: 048
     Dates: start: 20180222, end: 20180422
  23. FEXOFENADINE [Concomitant]
     Active Substance: FEXOFENADINE HYDROCHLORIDE
     Dosage: 180 MG, AS NEEDED
     Route: 048
     Dates: start: 20190516
  24. HYPROMELLOSES [Concomitant]
     Active Substance: HYPROMELLOSES
     Dosage: UNK
     Dates: start: 20160831
  25. HYPROMELLOSES [Concomitant]
     Active Substance: HYPROMELLOSES
     Dosage: UNK
     Dates: start: 20160831
  26. HYALURONIC ACID [Concomitant]
     Active Substance: HYALURONIC ACID
     Dosage: UNK
     Route: 061
     Dates: start: 20180226
  27. HYALURONATE SODIUM [Concomitant]
     Active Substance: HYALURONATE SODIUM
  28. HYDROCORTISONE [Concomitant]
     Active Substance: HYDROCORTISONE
     Dosage: 2.5 MG
     Route: 002
     Dates: start: 20200610
  29. LOPERAMIDE [Concomitant]
     Active Substance: LOPERAMIDE
     Indication: Diarrhoea
     Dosage: 1 DF, AS NEEDED (1 CAPSULE AS NEEDED.)
     Route: 048
     Dates: start: 20150415
  30. LAVENDER [Concomitant]
     Active Substance: ALCOHOL
     Dosage: UNK
     Route: 061
     Dates: start: 20200117, end: 20200117
  31. MOMETASONE [Concomitant]
     Active Substance: MOMETASONE
     Dosage: 2 PUFF QD
     Route: 065
     Dates: start: 20120925
  32. MOMETASONE [Concomitant]
     Active Substance: MOMETASONE
     Dosage: 2 PUFF QD
     Route: 065
     Dates: start: 20120925
  33. METOCLOPRAMIDE [Concomitant]
     Active Substance: METOCLOPRAMIDE
     Dosage: 10 MG
     Route: 048
     Dates: start: 20200619
  34. NITROFURANTOIN [Concomitant]
     Active Substance: NITROFURANTOIN
     Dosage: 100 MG
     Route: 048
     Dates: start: 20200407, end: 20200410
  35. OMEPRAZOLE [Concomitant]
     Active Substance: OMEPRAZOLE
     Indication: Prophylaxis
     Dosage: 20 MG, AS NEEDED
     Route: 048
     Dates: start: 20160212
  36. ACETAMINOPHEN [Concomitant]
     Active Substance: ACETAMINOPHEN
     Dosage: 1 G, AS NEEDED
     Route: 048
     Dates: start: 2017
  37. ACETAMINOPHEN [Concomitant]
     Active Substance: ACETAMINOPHEN
     Dosage: 1 G
     Route: 048
     Dates: start: 2017
  38. CHLORPHENIRAMINE MALEATE [Concomitant]
     Active Substance: CHLORPHENIRAMINE MALEATE
     Dosage: 1 DF, 1X/DAY
     Route: 048
     Dates: start: 20170503, end: 20170503
  39. CHLORPHENIRAMINE MALEATE [Concomitant]
     Active Substance: CHLORPHENIRAMINE MALEATE
     Dosage: 4 MG, 1X/DAY
     Route: 048
     Dates: start: 201904, end: 20190502
  40. CHLORPHENIRAMINE MALEATE [Concomitant]
     Active Substance: CHLORPHENIRAMINE MALEATE
     Dosage: 4 MG, 4-6 HOURLY
     Route: 048
     Dates: start: 20190502, end: 20190515
  41. PARAFFIN [Concomitant]
     Active Substance: PARAFFIN
     Dosage: UNK, AS NEEDED
     Route: 061
     Dates: start: 20180403
  42. PEPPERMINT OIL [MENTHA X PIPERITA ESSENTIAL OIL] [Concomitant]
     Dosage: UNK, 1X/DAY
     Route: 061
     Dates: start: 20191219, end: 20191219
  43. ONDANSETRON [Concomitant]
     Active Substance: ONDANSETRON
     Dosage: UNK
  44. ALBUTEROL [Concomitant]
     Active Substance: ALBUTEROL
     Dosage: 2 PUFF AS NEEDED
     Route: 065
     Dates: start: 20000418
  45. ALBUTEROL [Concomitant]
     Active Substance: ALBUTEROL
     Dosage: 2 PUFF AS NEEDED
     Route: 065
     Dates: start: 20000418
  46. SYMBICORT [Concomitant]
     Active Substance: BUDESONIDE\FORMOTEROL FUMARATE DIHYDRATE
     Dosage: 1 DF, AS NEEDED (1 PUFF AS NEEDED)
     Route: 065
     Dates: start: 20151115
  47. SYMBICORT [Concomitant]
     Active Substance: BUDESONIDE\FORMOTEROL FUMARATE DIHYDRATE
     Dosage: UNK
     Route: 065
     Dates: start: 20151115
  48. SYMBICORT [Concomitant]
     Active Substance: BUDESONIDE\FORMOTEROL FUMARATE DIHYDRATE
     Dosage: UNK, 2X/DAY
     Route: 055
     Dates: start: 20190720
  49. SYMBICORT [Concomitant]
     Active Substance: BUDESONIDE\FORMOTEROL FUMARATE DIHYDRATE
     Dosage: UNK
     Route: 055
     Dates: start: 20190720
  50. SYSTANE BALANCE [Concomitant]
     Active Substance: PROPYLENE GLYCOL
     Dosage: 1 GTT, UNK (AS NEEDED)
     Route: 047
  51. TEA TREE OIL [Concomitant]
     Active Substance: TEA TREE OIL
     Dosage: UNK, AS NEEDED
     Route: 047
     Dates: start: 20191029, end: 20191031
  52. BENZYDAMINE [Concomitant]
     Active Substance: BENZYDAMINE
  53. DIPROBASE [PARAFFIN, LIQUID;WHITE SOFT PARAFFIN] [Concomitant]
  54. BERGAMOT OIL [Concomitant]
     Active Substance: BERGAMOT OIL
  55. VITAMINS NOS [Concomitant]
     Active Substance: VITAMINS

REACTIONS (10)
  - Skin ulcer [Recovered/Resolved]
  - Mass [Recovered/Resolved]
  - Abdominal pain [Recovered/Resolved]
  - Neuropathy peripheral [Recovered/Resolved]
  - Pain [Recovered/Resolved]
  - Alopecia [Recovered/Resolved]
  - Nail disorder [Recovered/Resolved]
  - Fatigue [Recovered/Resolved]
  - Nausea [Recovered/Resolved]
  - Extravasation [Recovered/Resolved]

NARRATIVE: CASE EVENT DATE: 20160211
